FAERS Safety Report 5724918-2 (Version None)
Quarter: 2008Q2

REPORT INFORMATION
  Report Type: 
  Country: None (occurrence: None)
  Receive Date: 20080430
  Receipt Date: 20080430
  Transmission Date: 20081010
  Serious: Yes (Hospitalization)
  Sender: FDA-Public Use
  Company Number: None

PATIENT
  Sex: Male
  Weight: 86 kg

DRUGS (1)
  1. HUMIRA [Suspect]
     Indication: CROHN'S DISEASE
     Dosage: 40 MG EVERY OTHER WEEK SQ PREADMISSION X 8-10 WEEKS --
     Route: 058

REACTIONS (8)
  - ARRHYTHMIA SUPRAVENTRICULAR [None]
  - BRAIN NATRIURETIC PEPTIDE INCREASED [None]
  - BREATH SOUNDS ABNORMAL [None]
  - CHEST PAIN [None]
  - DYSPNOEA [None]
  - HEART RATE INCREASED [None]
  - PALPITATIONS [None]
  - PULMONARY EMBOLISM [None]
